FAERS Safety Report 22599804 (Version 1)
Quarter: 2023Q2

REPORT INFORMATION
  Report Type: Spontaneous
  Country: IT (occurrence: IT)
  Receive Date: 20230614
  Receipt Date: 20230614
  Transmission Date: 20230722
  Serious: Yes (Other)
  Sender: FDA-Public Use
  Company Number: IT-Gedeon Richter Plc.-2023_GR_004669

PATIENT
  Age: 45 Year
  Sex: Female

DRUGS (2)
  1. LEVONORGESTREL [Suspect]
     Active Substance: LEVONORGESTREL
     Indication: Product used for unknown indication
     Dosage: DOSE DESC: 52 MG, SINGLE AT AN INITIAL RELEASE RATE OF 20 MICROGRAMS PER 24 HOUR
  2. DEVICE [Suspect]
     Active Substance: DEVICE

REACTIONS (3)
  - Shock [Unknown]
  - Complication of device insertion [Unknown]
  - Device physical property issue [Unknown]
